FAERS Safety Report 6662871-8 (Version None)
Quarter: 2010Q1

REPORT INFORMATION
  Report Type: 
  Country: None (occurrence: None)
  Receive Date: 20100322
  Receipt Date: 20090520
  Transmission Date: 20100710
  Serious: Yes (Other)
  Sender: FDA-Public Use
  Company Number: E-09-020 (09-065)

PATIENT
  Age: 78 Year
  Sex: Female

DRUGS (7)
  1. SULFAZINE EC 500 MG (QUALITEST) [Suspect]
     Indication: RHEUMATOID ARTHRITIS
     Dosage: 500 MG P.O. T.I.D.
     Route: 048
     Dates: start: 20060101, end: 20090101
  2. LANOXIN [Concomitant]
  3. VEROPAMIL [Concomitant]
  4. ENALAPRIL MALEATE [Concomitant]
  5. FUROSEMIDE [Concomitant]
  6. PREDNISONE [Concomitant]
  7. POTASSIUM CHLORIDE [Concomitant]

REACTIONS (1)
  - STEVENS-JOHNSON SYNDROME [None]
